FAERS Safety Report 24649652 (Version 2)
Quarter: 2024Q4

REPORT INFORMATION
  Report Type: Spontaneous
  Country: US (occurrence: US)
  Receive Date: 20241121
  Receipt Date: 20241224
  Transmission Date: 20250114
  Serious: No
  Sender: TAKEDA
  Company Number: US-TAKEDA-2024TUS116829

PATIENT
  Sex: Female
  Weight: 63.9 kg

DRUGS (1)
  1. ADZYNMA [Suspect]
     Active Substance: ADAMTS13, RECOMBINANT-KRHN
     Indication: Prophylaxis
     Dosage: UNK UNK, Q2WEEKS
     Dates: start: 20240508

REACTIONS (3)
  - Product availability issue [Unknown]
  - Product dose omission issue [Unknown]
  - Poor venous access [Unknown]
